FAERS Safety Report 18758305 (Version 5)
Quarter: 2021Q2

REPORT INFORMATION
  Report Type: Spontaneous
  Country: US (occurrence: US)
  Receive Date: 20210119
  Receipt Date: 20210524
  Transmission Date: 20210717
  Serious: Yes (Death, Life-Threatening, Hospitalization)
  Sender: FDA-Public Use
  Company Number: US-CELGENEUS-USA-20210102081

PATIENT
  Age: 55 Year
  Sex: Female
  Weight: 60.2 kg

DRUGS (45)
  1. BUDESONIDE FORMOTEROL [Concomitant]
     Active Substance: BUDESONIDE
     Indication: CHRONIC OBSTRUCTIVE PULMONARY DISEASE
     Dosage: 4 PUFFS
     Route: 055
     Dates: start: 20201213
  2. AMPHOTERICIN B LIPOSOME [Concomitant]
     Active Substance: AMPHOTERICIN B
     Indication: PNEUMONIA
     Dosage: 275 MILLIGRAM
     Route: 041
     Dates: start: 20210102, end: 20210105
  3. DIPHENHYDRAMINE. [Concomitant]
     Active Substance: DIPHENHYDRAMINE
     Indication: PREMEDICATION
     Dosage: 25 MILLIGRAM
     Route: 048
     Dates: start: 20210102, end: 20210103
  4. LIDOCAINE. [Concomitant]
     Active Substance: LIDOCAINE
     Indication: PAIN IN EXTREMITY
     Route: 062
     Dates: start: 20201229, end: 20210103
  5. PRO STAT SUGAR FREE LIQUID [Concomitant]
     Indication: NUTRITIONAL SUPPLEMENTATION
     Dosage: 1 PACKET
     Route: 048
     Dates: start: 20210104
  6. VENETOCLAX. [Concomitant]
     Active Substance: VENETOCLAX
     Indication: MYELODYSPLASTIC SYNDROME
     Dosage: 400 MILLIGRAM
     Route: 048
     Dates: start: 20201229, end: 20210103
  7. SODIUM CHLORIDE. [Concomitant]
     Active Substance: SODIUM CHLORIDE
     Indication: FLUID BALANCE ASSESSMENT
     Route: 041
     Dates: start: 20201230, end: 20210103
  8. CHLORHEXIDINE [Concomitant]
     Active Substance: CHLORHEXIDINE
     Indication: DENTAL DISORDER PROPHYLAXIS
     Dosage: 15 MILLILITER
     Route: 048
     Dates: start: 20210105
  9. INSULIN GLARGINE [Concomitant]
     Active Substance: INSULIN GLARGINE
     Indication: TYPE 2 DIABETES MELLITUS
     Dosage: 100 IU (INTERNATIONAL UNIT)
     Route: 058
     Dates: start: 20201213
  10. OMEPRAZOLE. [Concomitant]
     Active Substance: OMEPRAZOLE
     Indication: GASTROOESOPHAGEAL REFLUX DISEASE
     Dosage: 40 MILLIGRAM
     Route: 048
     Dates: start: 2018
  11. PANTOPRAZOLE [Concomitant]
     Active Substance: PANTOPRAZOLE
     Indication: GASTROOESOPHAGEAL REFLUX DISEASE
     Dosage: 40 MILLIGRAM
     Route: 048
     Dates: start: 20201229, end: 20210105
  12. AMPHOTERICIN B LIPOSOME [Concomitant]
     Active Substance: AMPHOTERICIN B
     Dosage: 450 MILLIGRAM
     Route: 041
     Dates: start: 20210106, end: 20210109
  13. WHITE PETROLEUM [Concomitant]
     Active Substance: PETROLATUM
     Indication: EYE DISORDER
     Dosage: 0.5 APPLICATION
     Route: 061
     Dates: start: 20210105, end: 20210111
  14. LISINOPRIL. [Concomitant]
     Active Substance: LISINOPRIL
     Indication: HYPERTENSION
     Dosage: 10 MILLIGRAM
     Route: 048
     Dates: start: 2010
  15. TIOTROPIUM BROMIDE MONOHYDRATE [Concomitant]
     Active Substance: TIOTROPIUM BROMIDE MONOHYDRATE
     Indication: CHRONIC OBSTRUCTIVE PULMONARY DISEASE
     Dosage: 18 MICROGRAM
     Route: 055
     Dates: start: 2010
  16. VALACYCLOVIR [Concomitant]
     Active Substance: VALACYCLOVIR HYDROCHLORIDE
     Indication: ANTIVIRAL PROPHYLAXIS
     Dosage: 1000 MILLIGRAM
     Route: 048
     Dates: start: 20201229
  17. ACETAMINOPHEN. [Concomitant]
     Active Substance: ACETAMINOPHEN
     Indication: PREMEDICATION
     Route: 048
     Dates: start: 20201229, end: 20210110
  18. AMPHOTERICIN B LIPOSOME [Concomitant]
     Active Substance: AMPHOTERICIN B
     Dosage: 300 MILLIGRAM
     Route: 041
     Dates: start: 20210110
  19. CEFEPIME [Concomitant]
     Active Substance: CEFEPIME HYDROCHLORIDE
     Indication: EVIDENCE BASED TREATMENT
  20. GUAIFENESIN. [Concomitant]
     Active Substance: GUAIFENESIN
     Indication: COUGH
     Route: 048
     Dates: start: 20210103, end: 20210103
  21. AZACITIDINE. [Suspect]
     Active Substance: AZACITIDINE
     Indication: MYELODYSPLASTIC SYNDROME
     Dosage: 75 MILLIGRAM/SQ. METER
     Route: 041
     Dates: start: 20201229, end: 20210103
  22. QUETIAPINE. [Concomitant]
     Active Substance: QUETIAPINE
     Indication: INSOMNIA
     Dosage: 25 MILLIGRAM
     Route: 048
     Dates: start: 2015
  23. SIMVASTATIN. [Concomitant]
     Active Substance: SIMVASTATIN
     Indication: HYPERLIPIDAEMIA
     Dosage: 40 MILLIGRAM
     Route: 048
     Dates: start: 2010
  24. HYDROCORTISONE SODIUM SUCCINATE [Concomitant]
     Active Substance: HYDROCORTISONE SODIUM SUCCINATE
     Indication: DYSPNOEA
     Dosage: 25?50 MILLIGRAM
     Route: 048
     Dates: start: 20210102
  25. SODIUM CHLORIDE. [Concomitant]
     Active Substance: SODIUM CHLORIDE
     Indication: PROPHYLAXIS
     Dosage: 100 ML/HR
     Route: 041
     Dates: start: 20201229, end: 20210103
  26. BUPROPION. [Concomitant]
     Active Substance: BUPROPION
     Indication: ANXIETY
     Dosage: 300 MILLIGRAM
     Route: 048
     Dates: start: 202010
  27. NICOTINE. [Concomitant]
     Active Substance: NICOTINE
     Indication: ROUTINE HEALTH MAINTENANCE
     Route: 062
     Dates: start: 20201230, end: 20210103
  28. MAGNESIUM SULFATE. [Concomitant]
     Active Substance: MAGNESIUM SULFATE
     Indication: HYPOMAGNESAEMIA
     Dosage: 1?2 GRAM (AS REQUIRED)
     Route: 041
     Dates: start: 20210101, end: 20210110
  29. AMPHOTERICIN B LIPOSOME [Concomitant]
     Active Substance: AMPHOTERICIN B
     Dosage: 175 MILLIGRAM
     Route: 041
     Dates: start: 20210105, end: 20210105
  30. METRONIDAZOLE. [Concomitant]
     Active Substance: METRONIDAZOLE
     Indication: PYREXIA
     Dosage: 4500 MILLIGRAM
     Route: 041
     Dates: start: 20201231, end: 20210105
  31. ONDANSETRON [Concomitant]
     Active Substance: ONDANSETRON
     Indication: PREMEDICATION
     Dosage: 16 MILLIGRAM
     Route: 048
     Dates: start: 20201229, end: 20210103
  32. SODIUM CHLORIDE. [Concomitant]
     Active Substance: SODIUM CHLORIDE
     Indication: HYPOTENSION
     Dosage: 50?100 MILLILITER
     Route: 041
     Dates: start: 20201229, end: 20210104
  33. OXYGEN. [Concomitant]
     Active Substance: OXYGEN
     Indication: DYSPNOEA
     Route: 045
     Dates: start: 20201231
  34. ALLOPURINOL. [Concomitant]
     Active Substance: ALLOPURINOL
     Indication: PROPHYLAXIS
     Route: 048
     Dates: start: 20201213
  35. OXYCODONE [Concomitant]
     Active Substance: OXYCODONE
     Indication: PAIN IN EXTREMITY
     Route: 048
     Dates: start: 20201213
  36. PANTOPRAZOLE [Concomitant]
     Active Substance: PANTOPRAZOLE
     Dosage: 40 MILLIGRAM
     Route: 048
     Dates: start: 20210106
  37. FUROSEMIDE. [Concomitant]
     Active Substance: FUROSEMIDE
     Indication: DYSPNOEA
     Dosage: 10 MILLIGRAM
     Route: 041
     Dates: start: 20210103, end: 20210103
  38. SODIUM BICARBONATE. [Concomitant]
     Active Substance: SODIUM BICARBONATE
     Indication: ROUTINE HEALTH MAINTENANCE
     Route: 041
     Dates: start: 20210105, end: 20210111
  39. CEFEPIME [Concomitant]
     Active Substance: CEFEPIME HYDROCHLORIDE
     Indication: PYREXIA
     Dosage: 6000 MILLIGRAM
     Route: 041
     Dates: start: 20201231, end: 20210105
  40. IPRATROPIUM [Concomitant]
     Active Substance: IPRATROPIUM
     Indication: DYSPNOEA
     Dosage: 2.5 MILLILITER
     Route: 065
     Dates: start: 20210102, end: 20210103
  41. PHYTONADIONE. [Concomitant]
     Active Substance: PHYTONADIONE
     Indication: INTERNATIONAL NORMALISED RATIO INCREASED
     Dosage: 5 MILLIGRAM
     Route: 048
     Dates: start: 20210103, end: 20210105
  42. VANCOMYCIN [Concomitant]
     Active Substance: VANCOMYCIN
     Indication: SOFT TISSUE INFECTION
     Dosage: 1500 MILLIGRAM
     Route: 041
     Dates: start: 20210101, end: 20210102
  43. FOLIC ACID. [Concomitant]
     Active Substance: FOLIC ACID
     Indication: SUPPLEMENTATION THERAPY
     Dosage: 1 MILLIGRAM
     Route: 048
     Dates: start: 20210105
  44. POLYETHYLENE GLYCOL [Concomitant]
     Active Substance: POLYETHYLENE GLYCOLS
     Indication: ABDOMINAL DISCOMFORT
     Dosage: 17 GRAM
     Route: 048
     Dates: start: 20210107, end: 20210110
  45. SENNA [Concomitant]
     Active Substance: SENNA LEAF\SENNOSIDES\SENNOSIDES A AND B
     Indication: ABDOMINAL DISCOMFORT
     Dosage: 17.2 GRAM
     Route: 048
     Dates: start: 20210107, end: 20210111

REACTIONS (4)
  - Respiratory failure [Fatal]
  - Respiratory failure [Recovered/Resolved]
  - Urinary tract infection enterococcal [Unknown]
  - Hypotension [Recovered/Resolved]

NARRATIVE: CASE EVENT DATE: 20210103
